FAERS Safety Report 13660862 (Version 1)
Quarter: 2017Q2

REPORT INFORMATION
  Report Type: Spontaneous
  Country: JP (occurrence: JP)
  Receive Date: 20170616
  Receipt Date: 20170616
  Transmission Date: 20170830
  Serious: Yes (Hospitalization, Other)
  Sender: FDA-Public Use
  Company Number: JP-BRISTOL-MYERS SQUIBB COMPANY-BMS-2017-052911

PATIENT
  Age: 71 Year
  Sex: Female

DRUGS (1)
  1. WARFARIN SODIUM. [Suspect]
     Active Substance: WARFARIN SODIUM
     Indication: PRODUCT USED FOR UNKNOWN INDICATION
     Route: 065

REACTIONS (8)
  - Transfusion [Unknown]
  - Disseminated intravascular coagulation [Unknown]
  - Retroperitoneal haematoma [Unknown]
  - Muscle haemorrhage [Unknown]
  - Haematoma [Unknown]
  - Drug ineffective [Unknown]
  - Drug resistance [Unknown]
  - Cerebral microhaemorrhage [Unknown]
